FAERS Safety Report 4366029-7 (Version None)
Quarter: 2004Q2

REPORT INFORMATION
  Report Type: 
  Country: None (occurrence: None)
  Receive Date: 20040524
  Receipt Date: 20040511
  Transmission Date: 20050107
  Serious: Yes (Hospitalization)
  Sender: FDA-Public Use
  Company Number: 2004CG00909

PATIENT
  Age: 28 Year
  Sex: Female
  Weight: 58 kg

DRUGS (3)
  1. NEXIUM [Suspect]
     Indication: GASTROINTESTINAL HAEMORRHAGE
     Dosage: 40 MG DAILY PO
     Route: 048
     Dates: start: 20040408, end: 20040410
  2. MOPRAL [Suspect]
     Indication: GASTROINTESTINAL HAEMORRHAGE
     Dosage: 40 MG DAILY IV
     Route: 042
     Dates: start: 20040406, end: 20040407
  3. ACETAMINOPHEN [Suspect]
     Dosage: 2 G DAILY IV
     Route: 042
     Dates: start: 20040406, end: 20040407

REACTIONS (5)
  - GASTROINTESTINAL HAEMORRHAGE [None]
  - NORMOCHROMIC NORMOCYTIC ANAEMIA [None]
  - PRURITUS [None]
  - SPLENOMEGALY [None]
  - THROMBOCYTOPENIC PURPURA [None]
